FAERS Safety Report 5510065-1 (Version None)
Quarter: 2007Q4

REPORT INFORMATION
  Report Type: 
  Country: None (occurrence: None)
  Receive Date: 20071108
  Receipt Date: 20070206
  Transmission Date: 20080405
  Serious: No
  Sender: FDA-Public Use
  Company Number: US-ABBOTT-07P-163-0358788-00

PATIENT
  Sex: Female
  Weight: 39.952 kg

DRUGS (4)
  1. BIAXIN [Suspect]
     Indication: SINUSITIS
     Route: 048
     Dates: start: 20070203
  2. BIAXIN [Suspect]
     Indication: BRONCHITIS
  3. CYANOCOBALAMIN [Concomitant]
     Indication: COLECTOMY
     Route: 050
  4. FOLIC ACID [Concomitant]
     Indication: COLECTOMY
     Route: 050

REACTIONS (1)
  - DIARRHOEA [None]
